FAERS Safety Report 9100500 (Version 2)
Quarter: 2013Q2

REPORT INFORMATION
  Report Type: Report from Study
  Country: US (occurrence: US)
  Receive Date: 20130215
  Receipt Date: 20130627
  Transmission Date: 20140414
  Serious: No
  Sender: FDA-Public Use
  Company Number: PHEH2013US003683

PATIENT
  Age: 43 Year
  Sex: Female
  Weight: 71.2 kg

DRUGS (4)
  1. GILENYA [Suspect]
     Indication: MULTIPLE SCLEROSIS
     Dosage: 0.5 MG, QD
     Route: 048
     Dates: start: 20121212
  2. POTASSIUM [Concomitant]
  3. CONTRACEPTIVES [Concomitant]
  4. ALEVE [Concomitant]

REACTIONS (2)
  - Carpal tunnel syndrome [Recovering/Resolving]
  - Arthralgia [Recovering/Resolving]
